FAERS Safety Report 7547703-8 (Version None)
Quarter: 2011Q2

REPORT INFORMATION
  Report Type: 
  Country: None (occurrence: None)
  Receive Date: 20110614
  Receipt Date: 20110503
  Transmission Date: 20111010
  Serious: No
  Sender: FDA-Public Use
  Company Number: US-BAYER-2011-038743

PATIENT
  Sex: Female

DRUGS (4)
  1. SUMATRIPTAN SUCCINATE [Concomitant]
     Indication: HEADACHE
  2. ASPIRIN [Suspect]
     Indication: HEADACHE
     Route: 048
  3. IBUPROFEN [Concomitant]
     Indication: HEADACHE
     Route: 048
  4. ALEVE (CAPLET) [Suspect]
     Indication: HEADACHE

REACTIONS (1)
  - HEADACHE [None]
